FAERS Safety Report 4713989-8 (Version None)
Quarter: 2005Q3

REPORT INFORMATION
  Report Type: 
  Country: None (occurrence: None)
  Receive Date: 20050714
  Receipt Date: 20050706
  Transmission Date: 20060218
  Serious: Yes (Other)
  Sender: FDA-Public Use
  Company Number: NL-BOEHRINGER INGELHEIM PHARMACEUTICALS, INC.-2005-NL-00188NL

PATIENT
  Sex: Female

DRUGS (6)
  1. SPIRIVA [Suspect]
  2. SYMBICORT TURBUHALER INHALDR 400/12MCG/DO 60DO [Suspect]
     Dosage: STRENGTH: 400/12MCG/DO 60DO  DAILY DOSE: 2 TIMES PER 1 DAYS 2
  3. AMLODIPINUM TABLET 10MG (MALEATE) [Suspect]
  4. NEWACE TABLET 10MG [Suspect]
  5. TRIODEEN DRAGEE [Suspect]
  6. OXAZEPAM TABLET 50MG [Suspect]

REACTIONS (1)
  - POLYNEUROPATHY [None]
